FAERS Safety Report 5048595-1 (Version None)
Quarter: 2006Q2

REPORT INFORMATION
  Report Type: 
  Country: None (occurrence: None)
  Receive Date: 20060626
  Receipt Date: 20060612
  Transmission Date: 20061013
  Serious: Yes (Life-Threatening)
  Sender: FDA-Public Use
  Company Number: 200610221

PATIENT
  Sex: Female
  Weight: 60 kg

DRUGS (1)
  1. RHOPHYLAC (ANTI-D IMMUNOGLBULIN) (ZLB BEHRING) [Suspect]
     Indication: FOETAL-MATERNAL HAEMORRHAGE
     Dosage: 12 U DAILY IJ
     Dates: start: 20060607

REACTIONS (7)
  - ANAEMIA [None]
  - DIALYSIS [None]
  - HYPOTENSION [None]
  - INTRAVASCULAR HAEMOLYSIS [None]
  - MUSCLE HAEMORRHAGE [None]
  - RENAL TUBULAR NECROSIS [None]
  - URINARY TRACT INFECTION [None]
